FAERS Safety Report 17080037 (Version 1)
Quarter: 2019Q4

REPORT INFORMATION
  Report Type: Report from Study
  Country: CA (occurrence: CA)
  Receive Date: 20191127
  Receipt Date: 20191127
  Transmission Date: 20200122
  Serious: Yes (Other)
  Sender: FDA-Public Use
  Company Number: CA-ROCHE-2477404

PATIENT
  Age: 59 Year
  Sex: Female

DRUGS (18)
  1. PANTOLOC [PANTOPRAZOLE] [Concomitant]
     Active Substance: PANTOPRAZOLE SODIUM
  2. PROLIA [Concomitant]
     Active Substance: DENOSUMAB
  3. RISEDRONATE [Concomitant]
     Active Substance: RISEDRONATE SODIUM
  4. PREDNISONE. [Concomitant]
     Active Substance: PREDNISONE
  5. QUETIAPINE. [Concomitant]
     Active Substance: QUETIAPINE
  6. ACTEMRA [Suspect]
     Active Substance: TOCILIZUMAB
     Indication: TEMPORAL ARTERITIS
     Dosage: ONGOING
     Route: 058
     Dates: start: 20191008
  7. ATORVASTATIN [Concomitant]
     Active Substance: ATORVASTATIN
  8. METFORMIN [Concomitant]
     Active Substance: METFORMIN HYDROCHLORIDE
     Route: 065
  9. SYSTANE ULTRA [Concomitant]
     Active Substance: POLYETHYLENE GLYCOL 400\PROPYLENE GLYCOL
  10. INSULIN [Concomitant]
     Active Substance: INSULIN NOS
  11. ZOPICLONE [Concomitant]
     Active Substance: ZOPICLONE
  12. TYLENOL [Concomitant]
     Active Substance: ACETAMINOPHEN
  13. ATIVAN [Concomitant]
     Active Substance: LORAZEPAM
  14. PERINDOPRIL [Concomitant]
     Active Substance: PERINDOPRIL
  15. FLUCONAZOLE. [Concomitant]
     Active Substance: FLUCONAZOLE
  16. DORZOLAMIDE;TIMOLOL [Concomitant]
     Active Substance: DORZOLAMIDE\TIMOLOL
  17. EMOLAX [MACROGOL 3350] [Concomitant]
  18. HUMULIN N [Concomitant]
     Active Substance: INSULIN HUMAN

REACTIONS (1)
  - Limb mass [Recovering/Resolving]

NARRATIVE: CASE EVENT DATE: 20191108
